FAERS Safety Report 8845755 (Version 1)
Quarter: 2012Q4

REPORT INFORMATION
  Report Type: 
  Country: US (occurrence: US)
  Receive Date: 20121017
  Receipt Date: 20121017
  Transmission Date: 20130627
  Serious: No
  Sender: FDA-Public Use
  Company Number: US-ASTRAZENECA-2012SE77885

PATIENT
  Age: 76 Year
  Sex: Male
  Weight: 94.8 kg

DRUGS (4)
  1. SYMBICORT [Suspect]
     Indication: CHRONIC OBSTRUCTIVE PULMONARY DISEASE
     Dosage: 80 MCG, TWO TIMES A DAY
     Route: 055
     Dates: start: 201209
  2. THIRTEEN OTHER MEDICATION [Concomitant]
     Indication: DIABETES MELLITUS
  3. THIRTEEN OTHER MEDICATION [Concomitant]
     Indication: HYPERTENSION
  4. THIRTEEN OTHER MEDICATION [Concomitant]
     Indication: CARDIAC DISORDER

REACTIONS (2)
  - Glycosylated haemoglobin increased [Not Recovered/Not Resolved]
  - Blood glucose increased [Not Recovered/Not Resolved]
